FAERS Safety Report 5122412-3 (Version None)
Quarter: 2006Q4

REPORT INFORMATION
  Report Type: 
  Country: None (occurrence: None)
  Receive Date: 20061004
  Receipt Date: 20060928
  Transmission Date: 20070319
  Serious: Yes (Hospitalization)
  Sender: FDA-Public Use
  Company Number: TPA2006A01658

PATIENT
  Age: 66 Year
  Sex: Female
  Weight: 99.3377 kg

DRUGS (12)
  1. ACTOS [Suspect]
     Indication: DIABETES MELLITUS NON-INSULIN-DEPENDENT
     Dosage: 15 MG, 1 IN 1 D, PER ORAL
     Route: 048
     Dates: start: 20040901
  2. NOVOLOG [Concomitant]
  3. LANTUS [Concomitant]
  4. SYNTHROID [Concomitant]
  5. LASIX [Concomitant]
  6. COZAAR [Concomitant]
  7. NORVASC [Concomitant]
  8. COUMADIN [Concomitant]
  9. MAGNESIUM OXIDE (MAGNESIUM OXIDE) [Concomitant]
  10. IRON (IRON) [Concomitant]
  11. VITAMIN E (TOOPHEROL) [Concomitant]
  12. ASPIRIN [Concomitant]

REACTIONS (3)
  - CAROTID ARTERY ATHEROMA [None]
  - HYPERTENSION [None]
  - OSTEOMYELITIS [None]
